FAERS Safety Report 4579054-8 (Version None)
Quarter: 2005Q1

REPORT INFORMATION
  Report Type: 
  Country: None (occurrence: None)
  Receive Date: 20050127
  Receipt Date: 20040903
  Transmission Date: 20050727
  Serious: No
  Sender: FDA-Public Use
  Company Number: USA040977354

PATIENT
  Age: 7 Year
  Sex: Male
  Weight: 23 kg

DRUGS (4)
  1. STRATTERA [Suspect]
     Dosage: 18 MG DAY
     Dates: start: 20040701
  2. ADDERALL 10 [Concomitant]
  3. PERIACTIN [Concomitant]
  4. TRILEPTAL [Concomitant]

REACTIONS (2)
  - HEADACHE [None]
  - PALPITATIONS [None]
